FAERS Safety Report 24459084 (Version 1)
Quarter: 2024Q4

REPORT INFORMATION
  Report Type: Spontaneous
  Country: CN (occurrence: CN)
  Receive Date: 20241018
  Receipt Date: 20241018
  Transmission Date: 20250114
  Serious: No
  Sender: ROCHE
  Company Number: CN-ROCHE-3528247

PATIENT
  Age: 55 Year
  Sex: Male

DRUGS (7)
  1. MABTHERA [Suspect]
     Active Substance: RITUXIMAB
     Indication: Extranodal marginal zone B-cell lymphoma (MALT type) stage II
     Dosage: R-CHOP, D0, 02/JUN/2021, 30/JUN/2021
     Route: 065
     Dates: start: 20210511
  2. GAZYVA [Suspect]
     Active Substance: OBINUTUZUMAB
     Indication: Extranodal marginal zone B-cell lymphoma (MALT type) stage II
     Dosage: GB,  2/SEP/2021, 14/OCT/2021, 23/FEB/2022, 7/APR/2022, 20/JUL/2022
     Route: 065
     Dates: start: 20210805
  3. VINDESINE [Concomitant]
     Active Substance: VINDESINE
     Indication: Extranodal marginal zone B-cell lymphoma (MALT type) stage II
     Dosage: R-CHOP, D1, 11/MAY/2021, 02/JUN/2021, 30/JUN/2021
     Dates: start: 20210511
  4. IFOSFAMIDE [Concomitant]
     Active Substance: IFOSFAMIDE
     Indication: Extranodal marginal zone B-cell lymphoma (MALT type) stage II
     Dosage: R-CHOP, D1, 2 JUN 2021, 30 JUN 2021
     Dates: start: 20210511
  5. DOXORUBICIN HYDROCHLORIDE [Concomitant]
     Active Substance: DOXORUBICIN HYDROCHLORIDE
     Indication: Extranodal marginal zone B-cell lymphoma (MALT type) stage II
     Dosage: R-CHOP, D1,  2 JUN 2021, 30 JUN 2021
     Dates: start: 20210511
  6. PREDNISONE [Concomitant]
     Active Substance: PREDNISONE
     Indication: Extranodal marginal zone B-cell lymphoma (MALT type) stage II
     Dosage: R-CHOP, D0-2, 2 JUN 2021, 30 JUN 2021
     Dates: start: 20210511
  7. BENDAMUSTINE [Concomitant]
     Active Substance: BENDAMUSTINE
     Indication: Extranodal marginal zone B-cell lymphoma (MALT type) stage II
     Dosage: GB, 2/SEP/2021, 14/OCT/2021, 23/FEB/2022, 7/APR/2022, 20/JUL/2022
     Dates: start: 20210805

REACTIONS (2)
  - Off label use [Unknown]
  - No adverse event [Unknown]
